FAERS Safety Report 4654468-6 (Version None)
Quarter: 2005Q2

REPORT INFORMATION
  Report Type: 
  Country: None (occurrence: None)
  Receive Date: 20050505
  Receipt Date: 20050505
  Transmission Date: 20051028
  Serious: No
  Sender: FDA-Public Use
  Company Number: None

PATIENT
  Age: 50 Year
  Sex: Female
  Weight: 50.8029 kg

DRUGS (4)
  1. WARFARIN SODIUM [Suspect]
     Indication: ANTICOAGULANT THERAPY
     Dosage: ORAL  DAILY  ON COUMADIN SINCE 2/26/03
     Route: 048
     Dates: start: 20030226
  2. WARFARIN SODIUM [Suspect]
     Indication: SYSTEMIC LUPUS ERYTHEMATOSUS
     Dosage: ORAL  DAILY  ON COUMADIN SINCE 2/26/03
     Route: 048
     Dates: start: 20030226
  3. COREG [Concomitant]
  4. ASPIRIN [Concomitant]

REACTIONS (1)
  - DIZZINESS [None]
